FAERS Safety Report 6533916-0 (Version None)
Quarter: 2010Q1

REPORT INFORMATION
  Report Type: 
  Country: None (occurrence: None)
  Receive Date: 20100111
  Receipt Date: 20100104
  Transmission Date: 20100710
  Serious: Yes (Hospitalization)
  Sender: FDA-Public Use
  Company Number: FR-ABBOTT-10P-056-0617473-00

PATIENT
  Age: 39 Year
  Sex: Male

DRUGS (9)
  1. DEPAKENE [Suspect]
     Indication: EPILEPSY
     Route: 048
     Dates: start: 20090601, end: 20090608
  2. DEPAKENE [Suspect]
     Route: 048
     Dates: start: 20090609, end: 20090708
  3. DEPAKENE [Suspect]
     Dates: start: 20090709
  4. RIVOTRIL [Suspect]
     Indication: EPILEPSY
     Dosage: DAILY
     Route: 048
     Dates: start: 20090601, end: 20090608
  5. RIVOTRIL [Suspect]
     Dosage: DAILY
     Route: 048
     Dates: start: 20090609, end: 20090708
  6. NEURONTIN [Suspect]
     Indication: EPILEPSY
     Route: 048
     Dates: start: 20090601, end: 20090608
  7. NEURONTIN [Suspect]
     Route: 048
     Dates: start: 20090708
  8. TRILEPTAL [Concomitant]
     Indication: DRUG USE FOR UNKNOWN INDICATION
  9. AUGMENTIN [Concomitant]
     Indication: DRUG USE FOR UNKNOWN INDICATION

REACTIONS (5)
  - AUTONOMIC NERVOUS SYSTEM IMBALANCE [None]
  - DRUG LEVEL INCREASED [None]
  - DYSARTHRIA [None]
  - POVERTY OF THOUGHT CONTENT [None]
  - PSYCHOMOTOR SKILLS IMPAIRED [None]
